FAERS Safety Report 24785186 (Version 1)
Quarter: 2024Q4

REPORT INFORMATION
  Report Type: Spontaneous
  Country: US (occurrence: None)
  Receive Date: 20241227
  Receipt Date: 20241227
  Transmission Date: 20250114
  Serious: Yes (Hospitalization)
  Sender: Public
  Company Number: None

PATIENT
  Age: 54 Year
  Sex: Female

DRUGS (1)
  1. EPCLUSA [Suspect]
     Active Substance: SOFOSBUVIR\VELPATASVIR
     Dosage: 400-100 MG QD ? ?

REACTIONS (5)
  - Haematemesis [None]
  - Gastric ulcer [None]
  - Insurance issue [None]
  - Back pain [None]
  - Impaired work ability [None]
